FAERS Safety Report 4697591-2 (Version None)
Quarter: 2005Q2

REPORT INFORMATION
  Report Type: 
  Country: None (occurrence: None)
  Receive Date: 20050621
  Receipt Date: 20050607
  Transmission Date: 20051028
  Serious: Yes (Hospitalization)
  Sender: FDA-Public Use
  Company Number: US_0409105646

PATIENT
  Age: 41 Year
  Sex: Female
  Weight: 89 kg

DRUGS (5)
  1. ZYPREXA [Suspect]
     Indication: ANXIETY
     Dates: start: 19990101, end: 20000301
  2. REMERON [Concomitant]
  3. INSULIN [Concomitant]
  4. FLUOXETINE [Concomitant]
  5. CIPROFLOXACIN [Concomitant]

REACTIONS (27)
  - AORTIC VALVE DISEASE [None]
  - ASPARTATE AMINOTRANSFERASE INCREASED [None]
  - BLOOD ALKALINE PHOSPHATASE INCREASED [None]
  - BLOOD CHLORIDE DECREASED [None]
  - BLOOD CHOLESTEROL INCREASED [None]
  - BLOOD SODIUM DECREASED [None]
  - BLOOD TRIGLYCERIDES INCREASED [None]
  - BLOOD URIC ACID INCREASED [None]
  - CORONARY ARTERY OCCLUSION [None]
  - CORONARY ARTERY STENOSIS [None]
  - CREATINE URINE INCREASED [None]
  - DIABETES MELLITUS [None]
  - DILATATION ATRIAL [None]
  - DISEASE RECURRENCE [None]
  - EAR PAIN [None]
  - GLYCOSYLATED HAEMOGLOBIN INCREASED [None]
  - HYPERTENSION [None]
  - HYPOACUSIS [None]
  - HYPOGLYCAEMIA [None]
  - MYOCARDIAL INFARCTION [None]
  - OBESITY [None]
  - PAIN [None]
  - PROTEIN TOTAL INCREASED [None]
  - VENTRICULAR DYSFUNCTION [None]
  - VENTRICULAR HYPERTROPHY [None]
  - VISION BLURRED [None]
  - WEIGHT DECREASED [None]
